FAERS Safety Report 15979210 (Version 1)
Quarter: 2019Q1

REPORT INFORMATION
  Report Type: Spontaneous
  Country: US (occurrence: US)
  Receive Date: 20190216
  Receipt Date: 20190216
  Transmission Date: 20190418
  Serious: No
  Sender: FDA-Public Use
  Company Number: None

PATIENT
  Age: 43 Year
  Sex: Female
  Weight: 89.1 kg

DRUGS (2)
  1. NORETHINDRONE TABLETS USP [Suspect]
     Active Substance: NORETHINDRONE
     Indication: CONTRACEPTION
     Dosage: ?          QUANTITY:28 TABLET(S);?
     Route: 048
     Dates: start: 20181101, end: 20190216
  2. LISINOPRIL. [Concomitant]
     Active Substance: LISINOPRIL

REACTIONS (10)
  - Headache [None]
  - Breast tenderness [None]
  - Breast discomfort [None]
  - Blood urine present [None]
  - Fatigue [None]
  - Metrorrhagia [None]
  - Vision blurred [None]
  - Insomnia [None]
  - Abdominal distension [None]
  - Libido decreased [None]

NARRATIVE: CASE EVENT DATE: 20181201
